FAERS Safety Report 14713700 (Version 3)
Quarter: 2018Q2

REPORT INFORMATION
  Report Type: Spontaneous
  Country: JP (occurrence: JP)
  Receive Date: 20180404
  Receipt Date: 20180518
  Transmission Date: 20180711
  Serious: Yes (Other)
  Sender: FDA-Public Use
  Company Number: JP-009507513-1803JPN002978J

PATIENT
  Sex: Male

DRUGS (4)
  1. BELSOMRA [Suspect]
     Active Substance: SUVOREXANT
     Dosage: 15 MG, QD
     Route: 048
     Dates: start: 20171214, end: 201804
  2. DEPAS [Concomitant]
     Active Substance: ETIZOLAM
     Indication: INSOMNIA
     Dosage: 0.5 MG, MORNING, NOON, EVENING, BEFORE BED
     Route: 048
  3. LUNESTA [Concomitant]
     Active Substance: ESZOPICLONE
     Indication: INSOMNIA
     Dosage: 1 MG, QD
     Route: 048
  4. OPDIVO [Concomitant]
     Active Substance: NIVOLUMAB
     Dosage: UNK
     Route: 065

REACTIONS (1)
  - Paralysis recurrent laryngeal nerve [Unknown]

NARRATIVE: CASE EVENT DATE: 201803
